FAERS Safety Report 8915902 (Version 1)
Quarter: 2012Q4

REPORT INFORMATION
  Report Type: 
  Country: US (occurrence: US)
  Receive Date: 20121119
  Receipt Date: 20121119
  Transmission Date: 20130627
  Serious: No
  Sender: FDA-Public Use
  Company Number: US-PFIZER INC-2012287136

PATIENT
  Sex: Male
  Weight: 72.56 kg

DRUGS (1)
  1. DILANTIN [Suspect]
     Indication: SEIZURES
     Dosage: UNK
     Dates: start: 1999

REACTIONS (1)
  - Nasopharyngitis [Unknown]
